FAERS Safety Report 6775269-9 (Version None)
Quarter: 2010Q2

REPORT INFORMATION
  Report Type: 
  Country: None (occurrence: None)
  Receive Date: 20100617
  Receipt Date: 20100609
  Transmission Date: 20101027
  Serious: Yes (Life-Threatening)
  Sender: FDA-Public Use
  Company Number: GXKR2010GB06372

PATIENT
  Age: 18 Year
  Sex: Female

DRUGS (4)
  1. DIAZEPAM [Suspect]
     Dosage: 5 MG, BID
  2. HUMAN PAPILLOMA VIRUS VACCINE [Suspect]
     Indication: IMMUNISATION
     Dosage: 0.5 ML, UNK
     Route: 030
     Dates: start: 20100516, end: 20100516
  3. ANTIBIOTICS [Concomitant]
     Indication: ABSCESS
  4. CONTRACEPTIVES NOS [Concomitant]
     Route: 048

REACTIONS (4)
  - ABSCESS [None]
  - CONVULSION [None]
  - EMOTIONAL DISORDER [None]
  - ENCEPHALITIS [None]
